FAERS Safety Report 9032227 (Version 1)
Quarter: 2013Q1

REPORT INFORMATION
  Report Type: Spontaneous
  Country: GB (occurrence: GB)
  Receive Date: 20130122
  Receipt Date: 20130122
  Transmission Date: 20140127
  Serious: Yes (Other)
  Sender: FDA-Public Use
  Company Number: GB-009507513-1207GBR002184

PATIENT
  Sex: 0

DRUGS (1)
  1. BCG LIVE [Suspect]
     Dosage: .1 ML
     Route: 023
     Dates: start: 20120628, end: 20120628

REACTIONS (6)
  - Vision blurred [Recovered/Resolved]
  - Dizziness [Recovered/Resolved]
  - Malaise [Recovered/Resolved]
  - Hypotension [Recovered/Resolved]
  - Nausea [Recovered/Resolved]
  - Hyperhidrosis [Recovered/Resolved]
